FAERS Safety Report 19620394 (Version 1)
Quarter: 2021Q3

REPORT INFORMATION
  Report Type: Other
  Country: NL (occurrence: NL)
  Receive Date: 20210728
  Receipt Date: 20210728
  Transmission Date: 20211014
  Serious: Yes (Other)
  Sender: FDA-Public Use
  Company Number: NL-ROCHE-2875484

PATIENT
  Age: 53 Year
  Sex: Female

DRUGS (6)
  1. CYCLOPHOSPHAMIDE. [Suspect]
     Active Substance: CYCLOPHOSPHAMIDE
     Indication: ANTIPHOSPHOLIPID SYNDROME
     Dosage: 1250 MG, 3 TIMES ONCE A MONTH
     Route: 065
  2. FENPROCOUMON [Concomitant]
     Active Substance: PHENPROCOUMON
     Indication: ANTIPHOSPHOLIPID SYNDROME
  3. LOW MOLECULAR WEIGHT HEPARIN [Concomitant]
     Active Substance: UNSPECIFIED INGREDIENT
     Indication: ANTIPHOSPHOLIPID SYNDROME
  4. RITUXIMAB. [Suspect]
     Active Substance: RITUXIMAB
     Indication: ANTIPHOSPHOLIPID SYNDROME
     Dosage: 375 MG/M2, QW (4 TIMES 375 MG/M2 ONCE A WEEK)
     Route: 065
  5. HYDROXYCHLOROQUINE [Suspect]
     Active Substance: HYDROXYCHLOROQUINE
     Indication: ANTIPHOSPHOLIPID SYNDROME
     Route: 065
  6. MYCOPHENOLATE MOFETIL. [Suspect]
     Active Substance: MYCOPHENOLATE MOFETIL
     Indication: ANTIPHOSPHOLIPID SYNDROME
     Dosage: 1000 MG, BID
     Route: 065

REACTIONS (4)
  - Antiphospholipid syndrome [Recovered/Resolved]
  - Skin lesion [Recovered/Resolved]
  - Treatment failure [Recovered/Resolved]
  - Disease progression [Recovered/Resolved]
